FAERS Safety Report 10647265 (Version 1)
Quarter: 2014Q4

REPORT INFORMATION
  Report Type: Spontaneous
  Country: US (occurrence: US)
  Receive Date: 20141211
  Receipt Date: 20141211
  Transmission Date: 20150529
  Serious: No
  Sender: FDA-Public Use
  Company Number: US-009507513-1412USA001559

PATIENT
  Age: 54 Year
  Sex: Female

DRUGS (6)
  1. SPIRIVA [Concomitant]
     Active Substance: TIOTROPIUM BROMIDE MONOHYDRATE
  2. GEODON [Concomitant]
     Active Substance: ZIPRASIDONE HYDROCHLORIDE\ZIPRASIDONE MESYLATE
  3. LEVOTHYROXINE SODIUM. [Concomitant]
     Active Substance: LEVOTHYROXINE SODIUM
  4. XANAX [Concomitant]
     Active Substance: ALPRAZOLAM
  5. PEGINTRON [Suspect]
     Active Substance: PEGINTERFERON ALFA-2B
     Indication: HEPATITIS C
     Dosage: ONE SHOT ONCE A WEEK
     Dates: start: 20141125
  6. VITAMINS (UNSPECIFIED) [Concomitant]
     Active Substance: VITAMINS
     Dosage: REDIPEN

REACTIONS (8)
  - Inappropriate schedule of drug administration [Unknown]
  - Paranoia [Recovered/Resolved]
  - Malaise [Recovered/Resolved]
  - Vomiting [Unknown]
  - Product quality issue [Unknown]
  - Decreased appetite [Not Recovered/Not Resolved]
  - Mental disorder [Recovered/Resolved]
  - Weight decreased [Not Recovered/Not Resolved]

NARRATIVE: CASE EVENT DATE: 201411
